FAERS Safety Report 25364883 (Version 1)
Quarter: 2025Q2

REPORT INFORMATION
  Report Type: Report from Study
  Country: US (occurrence: US)
  Receive Date: 20250527
  Receipt Date: 20250527
  Transmission Date: 20250717
  Serious: Yes (Hospitalization)
  Sender: EISAI
  Company Number: US-Eisai-EC-2025-185136

PATIENT
  Age: 46 Year
  Sex: Female
  Weight: 66 kg

DRUGS (10)
  1. LENVIMA [Suspect]
     Active Substance: LENVATINIB
     Indication: Renal cell carcinoma
     Dates: start: 202502, end: 2025
  2. LENVIMA [Suspect]
     Active Substance: LENVATINIB
     Dosage: PATIENT ONLY TAKING 10MG INSTEAD OF 20MG
     Dates: start: 202505
  3. DORZOLAMIDE [Concomitant]
     Active Substance: DORZOLAMIDE
  4. POTASSIUM PHOSPHATE, MONOBASIC [Concomitant]
     Active Substance: POTASSIUM PHOSPHATE, MONOBASIC
  5. VITAMINS [Concomitant]
     Active Substance: VITAMINS
  6. TACROLIMUS [Concomitant]
     Active Substance: TACROLIMUS
  7. PREDNISONE [Concomitant]
     Active Substance: PREDNISONE
  8. ROSUVASTATIN CALCIUM [Concomitant]
     Active Substance: ROSUVASTATIN CALCIUM
  9. CARVEDILOL [Concomitant]
     Active Substance: CARVEDILOL
  10. ONDANSETRON [Concomitant]
     Active Substance: ONDANSETRON

REACTIONS (6)
  - Fluid retention [Unknown]
  - Complications of transplanted kidney [Unknown]
  - Nausea [Not Recovered/Not Resolved]
  - Joint swelling [Unknown]
  - Peripheral swelling [Unknown]
  - Hypertension [Unknown]

NARRATIVE: CASE EVENT DATE: 20250101
